FAERS Safety Report 6106834-X (Version None)
Quarter: 2009Q1

REPORT INFORMATION
  Report Type: 
  Country: None (occurrence: None)
  Receive Date: 20090304
  Receipt Date: 20090224
  Transmission Date: 20090719
  Serious: Yes (Hospitalization)
  Sender: FDA-Public Use
  Company Number: 2009AL001105

PATIENT
  Age: 42 Year
  Sex: Female

DRUGS (2)
  1. FLUVOXAMINE MALEATE [Suspect]
     Indication: DEPRESSION
     Dosage: 300 MG; QD; PO
     Route: 048
  2. TOPIRAMATE [Concomitant]

REACTIONS (5)
  - ANXIETY [None]
  - DYSARTHRIA [None]
  - MIGRAINE [None]
  - MYOCLONUS [None]
  - TREMOR [None]
